FAERS Safety Report 18058766 (Version 3)
Quarter: 2020Q3

REPORT INFORMATION
  Report Type: Report from Study
  Country: US (occurrence: US)
  Receive Date: 20200723
  Receipt Date: 20200827
  Transmission Date: 20201103
  Serious: Yes (Hospitalization, Disabling)
  Sender: FDA-Public Use
  Company Number: US-SA-2017SA155429

PATIENT

DRUGS (9)
  1. OMEPRAZOLE. [Concomitant]
     Active Substance: OMEPRAZOLE
     Indication: GASTROOESOPHAGEAL REFLUX DISEASE
     Dosage: 40 UNK, QD
     Route: 048
     Dates: start: 2014
  2. FUROSEMIDE. [Concomitant]
     Active Substance: FUROSEMIDE
     Indication: OEDEMA
     Dosage: 40 UNK, QD
     Route: 048
     Dates: start: 2015
  3. ALEMTUZUMAB [Suspect]
     Active Substance: ALEMTUZUMAB
     Indication: MULTIPLE SCLEROSIS
     Dosage: 12 MG, QD
     Route: 041
     Dates: start: 20170526, end: 20170528
  4. OXCARBAZEPINE. [Concomitant]
     Active Substance: OXCARBAZEPINE
     Indication: EPILEPSY
     Dosage: 150 UNK, BID
     Route: 048
     Dates: start: 2014
  5. ATORVASTATIN [Concomitant]
     Active Substance: ATORVASTATIN
     Indication: LIPIDS INCREASED
     Dosage: 20 UNK, QD
     Route: 048
     Dates: start: 2014
  6. ALEMTUZUMAB [Suspect]
     Active Substance: ALEMTUZUMAB
     Dosage: 12 MG, QD
     Route: 041
     Dates: start: 20160523, end: 20160527
  7. AMPYRA [Suspect]
     Active Substance: DALFAMPRIDINE
     Indication: MULTIPLE SCLEROSIS
     Dosage: 10 MG, Q12H
     Route: 048
     Dates: start: 2010
  8. PARACETAMOL [Concomitant]
     Active Substance: ACETAMINOPHEN
     Dosage: UNK UNK,UNK
     Route: 065
  9. WARFARIN [Concomitant]
     Active Substance: WARFARIN
     Indication: DEEP VEIN THROMBOSIS
     Dosage: 5 UNK, QD
     Route: 048
     Dates: start: 2015

REACTIONS (31)
  - Haematocrit decreased [Unknown]
  - Speech disorder [Unknown]
  - White blood cells urine positive [Unknown]
  - Nitrite urine present [Unknown]
  - Walking disability [Not Recovered/Not Resolved]
  - Toothache [Recovering/Resolving]
  - Lymphopenia [Unknown]
  - Protein urine present [Unknown]
  - Fall [Recovered/Resolved]
  - Muscle spasms [Not Recovered/Not Resolved]
  - Urine abnormality [Unknown]
  - Urine leukocyte esterase positive [Unknown]
  - Haemoglobin decreased [Unknown]
  - Urinary tract infection [Recovered/Resolved]
  - Bacterial test positive [Recovered/Resolved]
  - Loss of personal independence in daily activities [Not Recovered/Not Resolved]
  - Hypoacusis [Unknown]
  - Blood urine present [Unknown]
  - Red cell distribution width increased [Unknown]
  - Bedridden [Not Recovered/Not Resolved]
  - Sensory loss [Not Recovered/Not Resolved]
  - Facial pain [Recovering/Resolving]
  - Gingival pain [Recovering/Resolving]
  - CD4 lymphocytes decreased [Recovered/Resolved]
  - Off label use [Unknown]
  - Red blood cells urine positive [Unknown]
  - Mean cell volume decreased [Unknown]
  - Mean cell haemoglobin decreased [Unknown]
  - Mean cell haemoglobin concentration decreased [Unknown]
  - Joint injury [Not Recovered/Not Resolved]
  - Hypokinesia [Not Recovered/Not Resolved]

NARRATIVE: CASE EVENT DATE: 20171024
